FAERS Safety Report 7178962-1 (Version None)
Quarter: 2010Q4

REPORT INFORMATION
  Report Type: 
  Country: None (occurrence: None)
  Receive Date: 20101221
  Receipt Date: 20101215
  Transmission Date: 20110411
  Serious: Yes (Death)
  Sender: FDA-Public Use
  Company Number: US-AMGEN-USASP2010005783

PATIENT

DRUGS (6)
  1. NPLATE [Suspect]
     Indication: IDIOPATHIC THROMBOCYTOPENIC PURPURA
     Dosage: 10 A?G/KG, UNK
     Dates: start: 20100607, end: 20100916
  2. CORTICOSTEROIDS [Concomitant]
     Indication: IDIOPATHIC THROMBOCYTOPENIC PURPURA
  3. ARANESP [Suspect]
     Dates: start: 20100301, end: 20100902
  4. GEMZAR [Concomitant]
  5. TAXOTERE [Concomitant]
  6. NAUSEA CONTROL [Concomitant]

REACTIONS (1)
  - NON-SMALL CELL LUNG CANCER [None]
